FAERS Safety Report 7780936-4 (Version None)
Quarter: 2011Q3

REPORT INFORMATION
  Report Type: 
  Country: None (occurrence: None)
  Receive Date: 20110927
  Receipt Date: 20110916
  Transmission Date: 20111222
  Serious: Yes (Other)
  Sender: FDA-Public Use
  Company Number: US-TEVA-301169USA

PATIENT
  Sex: Female
  Weight: 67.646 kg

DRUGS (1)
  1. PARAGARD T 380A [Suspect]
     Indication: CONTRACEPTION
     Route: 015
     Dates: start: 20110201

REACTIONS (3)
  - DEVICE DISLOCATION [None]
  - PAIN [None]
  - APPENDICITIS [None]
